FAERS Safety Report 16156073 (Version 1)
Quarter: 2019Q2

REPORT INFORMATION
  Report Type: Spontaneous
  Country: HR (occurrence: HR)
  Receive Date: 20190404
  Receipt Date: 20190404
  Transmission Date: 20190711
  Serious: Yes (Hospitalization, Other)
  Sender: FDA-Public Use
  Company Number: HR-LUPIN PHARMACEUTICALS INC.-2019-01927

PATIENT
  Age: 41 Year
  Sex: Male

DRUGS (1)
  1. TESTOSTERONE. [Suspect]
     Active Substance: TESTOSTERONE
     Indication: PRODUCT USED FOR UNKNOWN INDICATION
     Dosage: UNK
     Route: 065

REACTIONS (12)
  - Dizziness [Unknown]
  - Polyuria [Unknown]
  - Proteinuria [Not Recovered/Not Resolved]
  - Creatine urine increased [Not Recovered/Not Resolved]
  - Hypertension [Unknown]
  - Creatinine renal clearance increased [Unknown]
  - Urine uric acid increased [Not Recovered/Not Resolved]
  - Weight increased [Unknown]
  - Drug abuse [Unknown]
  - Albuminuria [Not Recovered/Not Resolved]
  - Urea urine increased [Not Recovered/Not Resolved]
  - Urine electrolytes increased [Not Recovered/Not Resolved]
